FAERS Safety Report 14243583 (Version 2)
Quarter: 2017Q4

REPORT INFORMATION
  Report Type: Spontaneous
  Country: FR (occurrence: FR)
  Receive Date: 20171201
  Receipt Date: 20171229
  Transmission Date: 20180321
  Serious: Yes (Other)
  Sender: FDA-Public Use
  Company Number: FR-LEO PHARMA-305737

PATIENT
  Age: 81 Year
  Sex: Female

DRUGS (3)
  1. FLECAINIDE (FLECAINE) [Concomitant]
     Indication: PRODUCT USED FOR UNKNOWN INDICATION
     Dosage: STARTED ABOUT 1 YEAR PREVIOUSLY
     Route: 048
  2. BISOPROLOL (CARDENSIEL) [Concomitant]
     Indication: PRODUCT USED FOR UNKNOWN INDICATION
     Dosage: STARTED 2 OR 3 YEARS PREVIOUSLY
  3. PICATO [Suspect]
     Active Substance: INGENOL MEBUTATE
     Indication: ACTINIC KERATOSIS
     Route: 061
     Dates: start: 20171118, end: 20171119

REACTIONS (9)
  - Application site exfoliation [Recovering/Resolving]
  - Application site discolouration [Recovering/Resolving]
  - Medication error [Unknown]
  - Insomnia [Recovered/Resolved]
  - Nausea [Recovered/Resolved]
  - Application site erythema [Recovering/Resolving]
  - Application site burn [Recovering/Resolving]
  - Application site pruritus [Recovered/Resolved]
  - Application site pain [Recovered/Resolved]

NARRATIVE: CASE EVENT DATE: 201711
